FAERS Safety Report 10597543 (Version 1)
Quarter: 2014Q4

REPORT INFORMATION
  Report Type: Report from Study
  Country: NL (occurrence: NL)
  Receive Date: 20141121
  Receipt Date: 20141121
  Transmission Date: 20150529
  Serious: Yes (Other)
  Sender: FDA-Public Use
  Company Number: NL-AMGEN-NLDSL2012086725

PATIENT
  Age: 83 Year
  Sex: Female

DRUGS (1)
  1. ARANESP [Suspect]
     Active Substance: DARBEPOETIN ALFA
     Indication: PRODUCT USED FOR UNKNOWN INDICATION
     Dosage: 0.5 ML (40MCG/ML), Q2WK
     Route: 065
     Dates: start: 20120816

REACTIONS (13)
  - Pain in extremity [Unknown]
  - Eye pain [Unknown]
  - Eye inflammation [Unknown]
  - Dementia [Unknown]
  - Eyelid pain [Unknown]
  - Drug effect incomplete [Unknown]
  - Hypoaesthesia [Unknown]
  - Thermal burn [Unknown]
  - Eyelid disorder [Unknown]
  - Blister [Recovered/Resolved]
  - Somnolence [Unknown]
  - Hernia [Unknown]
  - Eye irritation [Unknown]
